FAERS Safety Report 17093353 (Version 1)
Quarter: 2019Q4

REPORT INFORMATION
  Report Type: Report from Study
  Country: US (occurrence: US)
  Receive Date: 20191129
  Receipt Date: 20191129
  Transmission Date: 20200122
  Serious: Yes (Death, Other)
  Sender: FDA-Public Use
  Company Number: US-GILEAD-2019-0440160

PATIENT
  Age: 30 Year
  Sex: Female

DRUGS (26)
  1. DIAZEPAM. [Concomitant]
     Active Substance: DIAZEPAM
  2. ATENOLOL. [Concomitant]
     Active Substance: ATENOLOL
  3. TOBRAMYCIN. [Concomitant]
     Active Substance: TOBRAMYCIN
  4. TOPAMAX [Concomitant]
     Active Substance: TOPIRAMATE
  5. DIPHENHYDRAMINE. [Concomitant]
     Active Substance: DIPHENHYDRAMINE
  6. XOPENEX [Concomitant]
     Active Substance: LEVALBUTEROL HYDROCHLORIDE
  7. REGLAN [Concomitant]
     Active Substance: METOCLOPRAMIDE HYDROCHLORIDE
  8. OXYGEN. [Concomitant]
     Active Substance: OXYGEN
  9. GAMUNEX [Concomitant]
     Active Substance: HUMAN IMMUNOGLOBULIN G
  10. HEPARIN [Concomitant]
     Active Substance: HEPARIN SODIUM
  11. OSMOLITE [Concomitant]
  12. PULMOZYME [Concomitant]
     Active Substance: DORNASE ALFA
  13. FENTANYL. [Concomitant]
     Active Substance: FENTANYL
  14. AZTREONAM LYSINE [Suspect]
     Active Substance: AZTREONAM LYSINE
     Indication: CYSTIC FIBROSIS
     Dosage: 75 MG, TID FOR 28 DAYS ON AND 28 DAYS OFF
     Route: 055
  15. ESCITALOPRAM OXALATE. [Concomitant]
     Active Substance: ESCITALOPRAM OXALATE
  16. COUMADIN [Concomitant]
     Active Substance: WARFARIN SODIUM
  17. NORMAL SALINE [Concomitant]
     Active Substance: SODIUM CHLORIDE
  18. EPINEPHRINE. [Concomitant]
     Active Substance: EPINEPHRINE
  19. KEPPRA [Concomitant]
     Active Substance: LEVETIRACETAM
  20. DILAUDID [Concomitant]
     Active Substance: HYDROMORPHONE HYDROCHLORIDE
  21. SODIUM CHLORIDE. [Concomitant]
     Active Substance: SODIUM CHLORIDE
  22. ACETAMINOPHEN. [Concomitant]
     Active Substance: ACETAMINOPHEN
  23. PULMICORT TURBUHALER [Concomitant]
     Active Substance: BUDESONIDE
  24. PATANASE [Concomitant]
     Active Substance: OLOPATADINE HYDROCHLORIDE
  25. XOLAIR [Concomitant]
     Active Substance: OMALIZUMAB
  26. INFED [Concomitant]
     Active Substance: IRON DEXTRAN

REACTIONS (1)
  - Death [Fatal]

NARRATIVE: CASE EVENT DATE: 20191126
